FAERS Safety Report 14630280 (Version 1)
Quarter: 2018Q1

REPORT INFORMATION
  Report Type: Spontaneous
  Country: GB (occurrence: GB)
  Receive Date: 20180313
  Receipt Date: 20180313
  Transmission Date: 20180509
  Serious: Yes (Other)
  Sender: FDA-Public Use
  Company Number: PHHY2018GB040286

PATIENT

DRUGS (2)
  1. VOTRIENT [Suspect]
     Active Substance: PAZOPANIB HYDROCHLORIDE
     Dosage: 400 MG, (7 DAYS BREAK ONCE A QUARTER(12 DAYS ON, 1 WEEK OFF)) QD
     Route: 065
  2. VOTRIENT [Suspect]
     Active Substance: PAZOPANIB HYDROCHLORIDE
     Indication: PRODUCT USED FOR UNKNOWN INDICATION
     Dosage: 800 MG, (FROM 18 DAYS AND 3 DAYS OFF) UNK
     Route: 065

REACTIONS (10)
  - Dysgeusia [Unknown]
  - Inappropriate schedule of drug administration [Unknown]
  - Diarrhoea [Unknown]
  - Fatigue [Unknown]
  - Thyroid disorder [Unknown]
  - Nausea [Unknown]
  - Limb discomfort [Unknown]
  - Hair colour changes [Unknown]
  - Decreased appetite [Unknown]
  - Hypertension [Unknown]
